FAERS Safety Report 8522743-0 (Version None)
Quarter: 2012Q3

REPORT INFORMATION
  Report Type: 
  Country: None (occurrence: None)
  Receive Date: 20120719
  Receipt Date: 20120712
  Transmission Date: 20120928
  Serious: Yes (Disabling, Other)
  Sender: FDA-Public Use
  Company Number: JP-B.I. PHARMACEUTICALS,INC./RIDGEFIELD-2012-BP-14676NB

PATIENT

DRUGS (8)
  1. AMLODIPINE [Concomitant]
     Dosage: 2 MG
     Route: 015
     Dates: end: 20120608
  2. LANSOPRAZOLE [Concomitant]
     Dosage: 15 MG
     Route: 015
     Dates: end: 20120608
  3. LENDEM [Concomitant]
     Dosage: 0.25 MG
     Route: 064
     Dates: end: 20120608
  4. MICARDIS [Suspect]
     Dosage: 40 MG
     Route: 064
     Dates: end: 20120608
  5. MIYA BM [Concomitant]
     Route: 015
     Dates: end: 20120608
  6. FERROUS CITRATE [Concomitant]
     Dosage: 100 MG
     Route: 015
     Dates: end: 20120608
  7. MEDIPEACE [Concomitant]
     Dosage: 1.5 MG
     Route: 015
     Dates: end: 20120608
  8. TIZANIDINE HYDROCHLORIDE [Concomitant]
     Dosage: 2 MG
     Route: 015
     Dates: end: 20120608

REACTIONS (4)
  - EPILEPSY [None]
  - FOETAL EXPOSURE DURING PREGNANCY [None]
  - CAESAREAN SECTION [None]
  - PULMONARY HYPOPLASIA [None]
